FAERS Safety Report 9166733 (Version 2)
Quarter: 2013Q1

REPORT INFORMATION
  Report Type: Report from Study
  Country: US (occurrence: US)
  Receive Date: 20130315
  Receipt Date: 20130320
  Transmission Date: 20140127
  Serious: Yes (Hospitalization, Other)
  Sender: FDA-Public Use
  Company Number: US-ABBOTT-13P-163-1060950-00

PATIENT
  Age: 53 None
  Sex: Male
  Weight: 68.1 kg

DRUGS (13)
  1. HUMIRA [Suspect]
     Indication: CROHN^S DISEASE
     Dates: start: 201109, end: 201207
  2. HUMIRA [Suspect]
     Dates: start: 201207, end: 20130306
  3. ALCOHOL [Suspect]
     Indication: PRODUCT USED FOR UNKNOWN INDICATION
  4. PROTONIX [Concomitant]
     Indication: DYSPEPSIA
  5. XANAX [Concomitant]
     Indication: ANXIETY
     Dosage: UNKNOWN DOSE, UP TO 3 PER DAY
  6. LORAZEPAM [Concomitant]
     Indication: ANXIETY
     Dosage: 1 TO 2 EVERY 4 HOURS
  7. MIRTAZAPINE [Concomitant]
     Indication: INSOMNIA
     Dosage: AT BEDTIME
  8. ZOLPIDEM TARTRATE [Concomitant]
     Indication: INSOMNIA
     Dosage: AT BEDTIME
  9. VITAMIN D [Concomitant]
     Indication: VITAMIN D DEFICIENCY
  10. GABAPENTIN [Concomitant]
     Indication: INSOMNIA
     Dosage: AS NEEDED, UP TO 3 PER DAY
  11. GABAPENTIN [Concomitant]
     Indication: ANXIETY
  12. PROAIR [Concomitant]
     Indication: DYSPNOEA
     Dosage: EVERY 4 HOURS AT NIGHT
     Route: 055
  13. FLONASE [Concomitant]
     Indication: NASAL DISORDER

REACTIONS (19)
  - Fatigue [Unknown]
  - Pancreatic carcinoma metastatic [Recovering/Resolving]
  - Wound [Unknown]
  - Wound infection [Unknown]
  - Furuncle [Unknown]
  - Wound haemorrhage [Unknown]
  - Memory impairment [Unknown]
  - Crohn^s disease [Unknown]
  - Decreased appetite [Unknown]
  - Vomiting [Unknown]
  - Pyrexia [Unknown]
  - Nausea [Not Recovered/Not Resolved]
  - Dehydration [Unknown]
  - Pancreatitis [Unknown]
  - Vomiting [Unknown]
  - Nausea [Not Recovered/Not Resolved]
  - Abdominal pain [Not Recovered/Not Resolved]
  - Abdominal pain [Not Recovered/Not Resolved]
  - Wound secretion [Unknown]
